FAERS Safety Report 7090737-0 (Version None)
Quarter: 2010Q4

REPORT INFORMATION
  Report Type: 
  Country: None (occurrence: None)
  Receive Date: 20101109
  Receipt Date: 20101026
  Transmission Date: 20110411
  Serious: Yes (Other)
  Sender: FDA-Public Use
  Company Number: PHHY2010FR73852

PATIENT
  Sex: Female

DRUGS (4)
  1. FEMARA [Suspect]
     Dosage: 2.5 MG, QD
     Route: 048
     Dates: start: 20050101
  2. MOPRAL [Concomitant]
  3. FUROSEMIDE [Concomitant]
  4. DIFFU K [Concomitant]

REACTIONS (4)
  - FOREIGN BODY IN EYE [None]
  - VISUAL IMPAIRMENT [None]
  - VITREOUS DETACHMENT [None]
  - VITREOUS FLOATERS [None]
